FAERS Safety Report 10182148 (Version 1)
Quarter: 2014Q2

REPORT INFORMATION
  Report Type: Spontaneous
  Country: NL (occurrence: NL)
  Receive Date: 20140520
  Receipt Date: 20140520
  Transmission Date: 20141212
  Serious: Yes (Hospitalization, Other)
  Sender: FDA-Public Use
  Company Number: NL-AMGEN INC.-NLDSP2014036305

PATIENT
  Age: 61 Year
  Sex: Female

DRUGS (1)
  1. NEULASTA [Suspect]
     Indication: PRODUCT USED FOR UNKNOWN INDICATION
     Dosage: 6 MG, Q3WKS
     Route: 058
     Dates: start: 20140424

REACTIONS (4)
  - Intestinal haemorrhage [Unknown]
  - Gastric haemorrhage [Unknown]
  - Intestinal fistula [Unknown]
  - Constipation [Unknown]
